FAERS Safety Report 10267091 (Version 1)
Quarter: 2014Q2

REPORT INFORMATION
  Report Type: Spontaneous
  Country: US (occurrence: US)
  Receive Date: 20140630
  Receipt Date: 20140630
  Transmission Date: 20141212
  Serious: Yes (Other)
  Sender: FDA-Public Use
  Company Number: US-ROCHE-1424044

PATIENT
  Sex: Female

DRUGS (2)
  1. RITUXAN [Suspect]
     Indication: WALDENSTROM^S MACROGLOBULINAEMIA
     Route: 065
  2. RITUXAN [Suspect]
     Indication: NON-HODGKIN^S LYMPHOMA

REACTIONS (2)
  - Loss of consciousness [Recovered/Resolved]
  - Chills [Recovered/Resolved]
